FAERS Safety Report 7717945-7 (Version None)
Quarter: 2011Q3

REPORT INFORMATION
  Report Type: 
  Country: None (occurrence: None)
  Receive Date: 20110830
  Receipt Date: 20110824
  Transmission Date: 20111222
  Serious: Yes (Death, Other)
  Sender: FDA-Public Use
  Company Number: JP-JNJFOC-20110206326

PATIENT
  Sex: Female
  Weight: 46 kg

DRUGS (5)
  1. DOXORUBICIN HCL [Suspect]
     Dosage: CYCLE 4
     Route: 042
     Dates: start: 20090827, end: 20090827
  2. DOXORUBICIN HCL [Suspect]
     Dosage: CYCLE 5
     Route: 042
     Dates: start: 20090924, end: 20090924
  3. DOXORUBICIN HCL [Suspect]
     Dosage: CYCLE 2
     Route: 042
     Dates: start: 20090702, end: 20090702
  4. DOXORUBICIN HCL [Suspect]
     Indication: OVARIAN CANCER RECURRENT
     Dosage: CYCLE 3
     Route: 042
     Dates: start: 20090730, end: 20090730
  5. DOXORUBICIN HCL [Suspect]
     Dosage: CYCLE 1
     Route: 042
     Dates: start: 20090602, end: 20090602

REACTIONS (2)
  - OVARIAN CANCER RECURRENT [None]
  - INTERSTITIAL LUNG DISEASE [None]
